FAERS Safety Report 8426437-1 (Version None)
Quarter: 2012Q2

REPORT INFORMATION
  Report Type: 
  Country: None (occurrence: None)
  Receive Date: 20120611
  Receipt Date: 20120605
  Transmission Date: 20120825
  Serious: Yes (Death, Hospitalization)
  Sender: FDA-Public Use
  Company Number: FR-PFIZER INC-2012129869

PATIENT
  Age: 71 Year
  Sex: Female

DRUGS (14)
  1. PREDNISOLONE [Concomitant]
  2. SUTENT [Suspect]
     Dosage: 50 MG, 1X/DAY
     Dates: start: 20090803, end: 20090812
  3. KETAMINE [Concomitant]
  4. ACETAMINOPHEN [Concomitant]
     Dosage: 1 G, UNK
  5. CLONAZEPAM [Concomitant]
  6. OMEPRAZOLE [Concomitant]
     Dosage: 20 MG, UNK
  7. DURAGESIC-100 [Concomitant]
  8. ORBENIN CAP [Concomitant]
     Dosage: 500 MG, UNK
  9. KETOPROFEN [Concomitant]
  10. POLYETHYLENE GLYCOL [Concomitant]
  11. SUTENT [Suspect]
     Indication: RENAL CANCER
     Dosage: 50 MG, 1X/DAY
     Dates: start: 20090619
  12. LYRICA [Concomitant]
  13. MODANE [Concomitant]
  14. OFLOXACIN [Concomitant]

REACTIONS (6)
  - DEATH [None]
  - GASTROINTESTINAL HAEMORRHAGE [None]
  - BACK PAIN [None]
  - CAUDA EQUINA SYNDROME [None]
  - SHOCK HAEMORRHAGIC [None]
  - PARAPARESIS [None]
